FAERS Safety Report 4374224-6 (Version None)
Quarter: 2004Q2

REPORT INFORMATION
  Report Type: 
  Country: None (occurrence: None)
  Receive Date: 20040609
  Receipt Date: 20040601
  Transmission Date: 20050107
  Serious: Yes (Death, Other)
  Sender: FDA-Public Use
  Company Number: NSADSS2003005375

PATIENT
  Sex: Male
  Weight: 88.45 kg

DRUGS (2)
  1. LEVAQUIN [Suspect]
     Route: 049
  2. LEVAQUIN [Suspect]
     Route: 049

REACTIONS (13)
  - ARTHRALGIA [None]
  - BLOOD PRESSURE INCREASED [None]
  - CARDIAC FAILURE [None]
  - DRUG INTOLERANCE [None]
  - HEADACHE [None]
  - INSOMNIA [None]
  - NEPHRITIS INTERSTITIAL [None]
  - ORTHOSTATIC HYPOTENSION [None]
  - PARAESTHESIA [None]
  - RENAL ATROPHY [None]
  - RENAL FAILURE ACUTE [None]
  - SYNCOPE [None]
  - VENTRICULAR TACHYCARDIA [None]
